FAERS Safety Report 6492056-X (Version None)
Quarter: 2009Q4

REPORT INFORMATION
  Report Type: 
  Country: None (occurrence: None)
  Receive Date: 20091125
  Receipt Date: 20090603
  Transmission Date: 20100525
  Serious: Yes (Other)
  Sender: FDA-Public Use
  Company Number: 2009BH009462

PATIENT
  Age: 35 Year
  Sex: Male

DRUGS (27)
  1. DIANEAL [Suspect]
     Indication: PERITONEAL DIALYSIS
     Dosage: 12.4 L ; EVERY DAY ; IP
     Route: 033
     Dates: start: 20060911
  2. EXTRANEAL [Suspect]
     Indication: PERITONEAL DIALYSIS
     Dosage: 2 L ; EVERY DAY ; IP
     Route: 033
     Dates: start: 20070901
  3. ASPIRIN [Concomitant]
  4. METOCLOPRAMIDE [Concomitant]
  5. CALCITRIOL [Concomitant]
  6. PRAVASTATIN [Concomitant]
  7. FLUDROCORTISONE [Concomitant]
  8. LORATADINE [Concomitant]
  9. HYDROCODONE [Concomitant]
  10. METOPROLOL [Concomitant]
  11. ESOMEPRAZOLE [Concomitant]
  12. ARANESP [Concomitant]
  13. LISINOPRIL [Concomitant]
  14. POTASSIUM CHLORIDE [Concomitant]
  15. SENNA [Concomitant]
  16. VITAMIN B COMPLEX CAP [Concomitant]
  17. NOVOLOG [Concomitant]
  18. ERYTHROMYCIN [Concomitant]
  19. HYDROCORTISONE [Concomitant]
  20. RENAGEL [Concomitant]
  21. AMITIZA [Concomitant]
  22. GLUCAGON [Concomitant]
  23. LACTULOSE [Concomitant]
  24. PSYLLIUM [Concomitant]
  25. MUPIROCIN [Concomitant]
  26. REGLAN [Concomitant]
  27. PROSTAT [Concomitant]

REACTIONS (2)
  - MALAISE [None]
  - PERITONITIS [None]
